FAERS Safety Report 8951617 (Version 2)
Quarter: 2013Q3

REPORT INFORMATION
  Report Type: Report from Study
  Country: CA (occurrence: CA)
  Receive Date: 20121204
  Receipt Date: 20130711
  Transmission Date: 20140515
  Serious: Yes (Death, Hospitalization)
  Sender: FDA-Public Use
  Company Number: CA-ROCHE-1164070

PATIENT
  Age: 80 Year
  Sex: Male

DRUGS (1)
  1. LUCENTIS [Suspect]
     Indication: DIABETIC RETINAL OEDEMA
     Route: 050

REACTIONS (3)
  - Death [Fatal]
  - General physical health deterioration [Unknown]
  - Pulmonary oedema [Unknown]
